FAERS Safety Report 4573005-8 (Version None)
Quarter: 2005Q1

REPORT INFORMATION
  Report Type: 
  Country: None (occurrence: None)
  Receive Date: 20050204
  Receipt Date: 20050119
  Transmission Date: 20050727
  Serious: Yes (Other)
  Sender: FDA-Public Use
  Company Number: 2005016666

PATIENT
  Age: 77 Year
  Sex: Male

DRUGS (3)
  1. HYDROCORTISONE [Suspect]
     Indication: ILL-DEFINED DISORDER
     Dosage: 100 MG (1 D), INTRAVENOUS
     Route: 042
  2. GLYBURIDE [Concomitant]
  3. BETAMETHASONE SODIUM PHOSPHATE [Concomitant]

REACTIONS (5)
  - DIPLEGIA [None]
  - PLEURISY [None]
  - PROTHROMBIN TIME PROLONGED [None]
  - PURULENCE [None]
  - SPONDYLITIS [None]
